FAERS Safety Report 25402319 (Version 1)
Quarter: 2025Q2

REPORT INFORMATION
  Report Type: Spontaneous
  Country: US (occurrence: None)
  Receive Date: 20250605
  Receipt Date: 20250605
  Transmission Date: 20250717
  Serious: Yes (Hospitalization)
  Sender: FDA-CTU
  Company Number: None

PATIENT
  Age: 85 Year
  Sex: Female

DRUGS (8)
  1. XDEMVY [Suspect]
     Active Substance: LOTILANER
     Indication: Ocular demodicosis
     Dosage: FREQUENCY : TWICE A DAY;?
     Route: 047
     Dates: start: 20250515, end: 20250531
  2. CALCIUM 500+ D TABLETS 400^S [Concomitant]
  3. ELIQUIS [Concomitant]
     Active Substance: APIXABAN
  4. GLYBURIDE [Concomitant]
     Active Substance: GLYBURIDE
  5. METOPROLOL SUCCINATE [Concomitant]
     Active Substance: METOPROLOL SUCCINATE
  6. PREDNISONE 1 MG TABLETS [Concomitant]
  7. RAMIPRIL 5MG CAPSULES [Concomitant]
  8. ROSUVASTATIN [Concomitant]
     Active Substance: ROSUVASTATIN

REACTIONS (4)
  - Palpitations [None]
  - Dyspnoea [None]
  - Dry eye [None]
  - Nasal dryness [None]

NARRATIVE: CASE EVENT DATE: 20250531
